FAERS Safety Report 13933053 (Version 3)
Quarter: 2023Q2

REPORT INFORMATION
  Report Type: Spontaneous
  Country: JP (occurrence: JP)
  Receive Date: 20170904
  Receipt Date: 20230623
  Transmission Date: 20230722
  Serious: Yes (Other)
  Sender: FDA-Public Use
  Company Number: None

PATIENT
  Age: 47 Year
  Sex: Female
  Weight: 46.6 kg

DRUGS (2)
  1. PACLITAXEL [Suspect]
     Active Substance: PACLITAXEL
     Indication: Hepatic angiosarcoma
     Dosage: 100 MG/DOSE, ONCE A WEEK
  2. PACLITAXEL [Suspect]
     Active Substance: PACLITAXEL
     Dosage: 35 MG/DOSE, EVERY 2 WEEKS

REACTIONS (3)
  - Neutropenia [Unknown]
  - Alopecia [Unknown]
  - Off label use [Unknown]
